FAERS Safety Report 7577867-1 (Version None)
Quarter: 2011Q2

REPORT INFORMATION
  Report Type: 
  Country: None (occurrence: None)
  Receive Date: 20110628
  Receipt Date: 20110616
  Transmission Date: 20111010
  Serious: Yes (Hospitalization)
  Sender: FDA-Public Use
  Company Number: PHHY2011JP09705

PATIENT
  Sex: Female

DRUGS (1)
  1. VOLTAREN [Suspect]
     Dosage: UNK
     Route: 067
     Dates: start: 20110201

REACTIONS (3)
  - CONCOMITANT DISEASE PROGRESSION [None]
  - METASTASES TO BONE [None]
  - INCORRECT ROUTE OF DRUG ADMINISTRATION [None]
